FAERS Safety Report 5804259-5 (Version None)
Quarter: 2008Q3

REPORT INFORMATION
  Report Type: 
  Country: None (occurrence: None)
  Receive Date: 20080709
  Receipt Date: 20080630
  Transmission Date: 20090109
  Serious: Yes (Death, Life-Threatening, Other)
  Sender: FDA-Public Use
  Company Number: DK-JNJFOC-20080406247

PATIENT
  Sex: Female

DRUGS (6)
  1. REMICADE [Suspect]
     Indication: RHEUMATOID ARTHRITIS
     Dosage: WEEK 0,2,6, AND 8
     Route: 042
  2. HUMIRA [Suspect]
     Indication: RHEUMATOID ARTHRITIS
     Route: 058
  3. ENBREL [Suspect]
     Indication: RHEUMATOID ARTHRITIS
     Route: 058
  4. SALAZOPYRIN [Concomitant]
     Route: 048
  5. PREDNISOLONE [Concomitant]
  6. TODOLAC [Concomitant]

REACTIONS (2)
  - LUNG ADENOCARCINOMA [None]
  - LUNG DISORDER [None]
